FAERS Safety Report 7239104-7 (Version None)
Quarter: 2011Q1

REPORT INFORMATION
  Report Type: 
  Country: None (occurrence: None)
  Receive Date: 20110121
  Receipt Date: 20101012
  Transmission Date: 20110831
  Serious: No
  Sender: FDA-Public Use
  Company Number: US-BAYER-201022468BCC

PATIENT
  Sex: Male
  Weight: 104.55 kg

DRUGS (7)
  1. ASPIRIN [Concomitant]
  2. CALCIUM [Concomitant]
  3. ALEVE [Suspect]
     Indication: BACK PAIN
     Dosage: 1 DF, TWO TO THREE TIMES A DAY
     Route: 048
  4. MULTI-VITAMIN [Concomitant]
  5. FISH OIL [Concomitant]
  6. SIMVASTATIN [Concomitant]
  7. DARVOCET [Concomitant]

REACTIONS (1)
  - OEDEMA PERIPHERAL [None]
